FAERS Safety Report 17629104 (Version 1)
Quarter: 2020Q2

REPORT INFORMATION
  Report Type: Spontaneous
  Country: US (occurrence: US)
  Receive Date: 20200406
  Receipt Date: 20200406
  Transmission Date: 20200713
  Serious: No
  Sender: FDA-Public Use
  Company Number: US-ALLERGAN-1941165US

PATIENT
  Sex: Female
  Weight: 62.14 kg

DRUGS (1)
  1. MESALAZINE - BP [Suspect]
     Active Substance: MESALAMINE
     Indication: COLITIS ULCERATIVE
     Dosage: 1000 MG, QD
     Route: 054

REACTIONS (2)
  - Poor quality product administered [Unknown]
  - Product quality issue [Unknown]
